FAERS Safety Report 15877129 (Version 1)
Quarter: 2019Q1

REPORT INFORMATION
  Report Type: Spontaneous
  Country: ES (occurrence: ES)
  Receive Date: 20190128
  Receipt Date: 20190128
  Transmission Date: 20190417
  Serious: Yes (Hospitalization)
  Sender: FDA-Public Use
  Company Number: ES-SA-2019SA014011

PATIENT
  Age: 68 Year
  Sex: Male

DRUGS (2)
  1. ESPIRONOLACTONA [Concomitant]
     Active Substance: SPIRONOLACTONE
     Indication: LIVER DISORDER
     Dosage: 25 MG, QD
     Route: 048
     Dates: start: 20170531
  2. ENOXAPARIN SODIUM. [Suspect]
     Active Substance: ENOXAPARIN SODIUM
     Indication: PORTAL VEIN THROMBOSIS
     Dosage: 60 MG, Q12H
     Route: 058
     Dates: start: 20160923

REACTIONS (1)
  - Anaemia [Recovering/Resolving]

NARRATIVE: CASE EVENT DATE: 20170710
